FAERS Safety Report 5163309-2 (Version None)
Quarter: 2006Q4

REPORT INFORMATION
  Report Type: 
  Country: None (occurrence: None)
  Receive Date: 20061204
  Receipt Date: 20061122
  Transmission Date: 20070319
  Serious: Yes (Hospitalization)
  Sender: FDA-Public Use
  Company Number: PHBS2006JP18186

PATIENT
  Sex: Male

DRUGS (3)
  1. STARSIS [Suspect]
     Indication: DIABETES MELLITUS
     Route: 048
     Dates: end: 20061107
  2. CALONAL [Concomitant]
  3. KINEDAK [Concomitant]

REACTIONS (2)
  - JAUNDICE [None]
  - LIVER DISORDER [None]
